FAERS Safety Report 4962829-0 (Version None)
Quarter: 2006Q1

REPORT INFORMATION
  Report Type: 
  Country: None (occurrence: None)
  Receive Date: 20060331
  Receipt Date: 20060315
  Transmission Date: 20060701
  Serious: Yes (Hospitalization)
  Sender: FDA-Public Use
  Company Number: 8015667

PATIENT
  Sex: Male

DRUGS (2)
  1. KEPPRA [Suspect]
  2. UNSPECIFIED ANTIEPILEPTICS [Concomitant]

REACTIONS (2)
  - STAPHYLOCOCCAL BACTERAEMIA [None]
  - WOUND INFECTION [None]
